FAERS Safety Report 17462314 (Version 2)
Quarter: 2020Q2

REPORT INFORMATION
  Report Type: Spontaneous
  Country: US (occurrence: US)
  Receive Date: 20200226
  Receipt Date: 20200415
  Transmission Date: 20200713
  Serious: No
  Sender: FDA-Public Use
  Company Number: US-ASTRAZENECA-2020SE24046

PATIENT
  Sex: Male

DRUGS (2)
  1. DIABETIC MEDICATION [Concomitant]
     Active Substance: UNSPECIFIED INGREDIENT
  2. BYDUREON [Suspect]
     Active Substance: EXENATIDE
     Indication: TYPE 2 DIABETES MELLITUS
     Route: 058

REACTIONS (5)
  - Injection site extravasation [Unknown]
  - Device issue [Unknown]
  - Incorrect dose administered by device [Unknown]
  - Acne [Recovered/Resolved]
  - Wrong technique in device usage process [Unknown]
